FAERS Safety Report 5812411-8 (Version None)
Quarter: 2008Q3

REPORT INFORMATION
  Report Type: 
  Country: None (occurrence: None)
  Receive Date: 20080711
  Receipt Date: 20080702
  Transmission Date: 20090109
  Serious: Yes (Hospitalization)
  Sender: FDA-Public Use
  Company Number: GXKR2008GB06126

PATIENT
  Age: 19 Year
  Sex: Female
  Weight: 77 kg

DRUGS (3)
  1. AZITHROMYCIN [Suspect]
     Indication: CHLAMYDIAL INFECTION
     Dosage: 1 G, ORAL
     Route: 048
     Dates: start: 20080614, end: 20080614
  2. MARVELON (DESOGESTREL, ETHINYLESTRADIOL) UNKNOWN [Concomitant]
  3. MICROGYNON (ETHINYLESTRADIOL, LEVONORGESTREL) UNKNOWN [Concomitant]

REACTIONS (6)
  - ASTHMA [None]
  - DIPLOPIA [None]
  - HEARING IMPAIRED [None]
  - NAUSEA [None]
  - SPEECH DISORDER [None]
  - SYNCOPE [None]
